FAERS Safety Report 8531064-1 (Version None)
Quarter: 2012Q3

REPORT INFORMATION
  Report Type: 
  Country: None (occurrence: None)
  Receive Date: 20120723
  Receipt Date: 20120713
  Transmission Date: 20120928
  Serious: Yes (Death, Hospitalization)
  Sender: FDA-Public Use
  Company Number: FR-ROCHE-760185

PATIENT
  Sex: Male
  Weight: 65 kg

DRUGS (26)
  1. AMIODARONE HYDROCHLORIDE [Suspect]
     Indication: CORONARY ARTERY DISEASE
  2. AVASTIN [Suspect]
     Indication: LUNG NEOPLASM MALIGNANT
     Route: 042
     Dates: start: 20101214, end: 20110125
  3. EPOETIN ALFA [Suspect]
     Indication: ANAEMIA
     Route: 058
     Dates: start: 20110207, end: 20110214
  4. PEGFILGRASTIM [Concomitant]
     Indication: LUNG NEOPLASM MALIGNANT
     Route: 058
     Dates: start: 20100105, end: 20100126
  5. PACLITAXEL [Concomitant]
     Indication: LUNG NEOPLASM MALIGNANT
     Route: 042
     Dates: start: 20110125, end: 20110125
  6. BISOPROLOL FUMARATE [Concomitant]
     Dosage: ONGOING UNTIL TIME OF DEATH.
     Route: 048
  7. ASPIRIN [Concomitant]
     Indication: CORONARY ARTERY DISEASE
     Dosage: ONGOING UNTIL TIME OF DEATH.
     Route: 048
  8. ENOXAPARINE SODIQUE [Concomitant]
     Indication: LUNG NEOPLASM MALIGNANT
     Route: 058
  9. FONDAPARINUX SODIUM [Concomitant]
     Indication: CORONARY ARTERY DISEASE
     Dosage: ONGOING UNTIL TIME OF DEATH
     Route: 058
     Dates: start: 20111207
  10. AMLODIPINE [Concomitant]
     Indication: CORONARY ARTERY DISEASE
     Dosage: ONGOING UNTIL TIME OF DEATH.
     Route: 048
     Dates: start: 20110101
  11. IVABRADINE [Concomitant]
     Indication: CORONARY ARTERY DISEASE
     Route: 048
     Dates: start: 20110101, end: 20111207
  12. BISOPROLOL FUMARATE [Concomitant]
     Indication: CORONARY ARTERY DISEASE
     Route: 048
  13. CLOPIDOGREL [Concomitant]
     Indication: CORONARY ARTERY DISEASE
     Dosage: ONGOING UNTIL TIME OF DEATH
     Route: 048
  14. ACID FOLIC [Concomitant]
     Indication: LUNG NEOPLASM MALIGNANT
     Route: 048
  15. ACETAMINOPHEN [Concomitant]
     Indication: LUNG NEOPLASM MALIGNANT
     Route: 048
  16. TRAMADOL HYDROCHLORIDE [Concomitant]
     Indication: LUNG NEOPLASM MALIGNANT
     Route: 048
  17. NITROGLYCERIN [Concomitant]
     Indication: CORONARY ARTERY DISEASE
     Dosage: ONGOING UNTIL TIME OF DEATH.
     Route: 003
     Dates: start: 20110101
  18. NEO-MERCAZOLE TAB [Concomitant]
     Indication: HYPERTHYROIDISM
     Dosage: ONGOING UNTIL TIME OF DEATH.
     Route: 048
     Dates: start: 20111214
  19. TIOTROPIUM BROMIDE [Concomitant]
     Indication: CHRONIC OBSTRUCTIVE PULMONARY DISEASE
     Dosage: ONGOING UNTIL TIME OF DEATH
  20. ONDANSETRON [Concomitant]
     Indication: LUNG NEOPLASM MALIGNANT
     Route: 048
     Dates: start: 20100125, end: 20100130
  21. VENOFER [Concomitant]
     Indication: ANAEMIA
     Route: 042
  22. ATORVASTATIN [Concomitant]
     Indication: CORONARY ARTERY DISEASE
     Dosage: ONGOING UNTIL TIME OF DEATH
     Route: 048
     Dates: start: 20101207
  23. AMIODARONE HYDROCHLORIDE [Suspect]
     Indication: ARRHYTHMIA
     Route: 048
     Dates: start: 20110213, end: 20111208
  24. CARBOPLATIN [Concomitant]
     Indication: LUNG NEOPLASM MALIGNANT
     Dosage: ONGOING UNTIL TIME OF DEATH.
     Route: 042
  25. PANTOPRAZOLE [Concomitant]
     Indication: PROPHYLAXIS AGAINST GASTROINTESTINAL ULCER
     Dosage: ONGOING UNTIL TIME OF DEATH.
     Route: 048
  26. BROMAZEPAM [Concomitant]
     Indication: ANXIETY
     Dosage: ONGOING UNTIL TIME OF DEATH.
     Route: 048
     Dates: start: 20110101

REACTIONS (2)
  - HYPERTHYROIDISM [None]
  - ACUTE CORONARY SYNDROME [None]
